FAERS Safety Report 5938039-7 (Version None)
Quarter: 2008Q4

REPORT INFORMATION
  Report Type: 
  Country: None (occurrence: None)
  Receive Date: 20081031
  Receipt Date: 20081017
  Transmission Date: 20090506
  Serious: Yes (Other)
  Sender: FDA-Public Use
  Company Number: JP-ROCHE-590212

PATIENT
  Age: 51 Year
  Sex: Female

DRUGS (7)
  1. VESANOID [Suspect]
     Indication: ACUTE PROMYELOCYTIC LEUKAEMIA
     Route: 048
  2. IDAMYCIN [Suspect]
     Indication: ACUTE PROMYELOCYTIC LEUKAEMIA
     Dosage: 68 MG IN TOTAL
     Route: 065
  3. CYLOCIDE [Suspect]
     Indication: ACUTE PROMYELOCYTIC LEUKAEMIA
     Dosage: 980MG IN TOTAL
     Route: 065
  4. CYLOCIDE [Suspect]
     Dosage: 700MG IN TOTAL
     Route: 065
  5. CYLOCIDE [Suspect]
     Dosage: 1400MG IN TOTAL
     Route: 065
  6. CYLOCIDE [Suspect]
     Dosage: 950MG IN TOTAL
     Route: 065
  7. ADRIACIN [Suspect]
     Indication: ACUTE PROMYELOCYTIC LEUKAEMIA
     Dosage: 204 MG IN TOTAL
     Route: 065

REACTIONS (1)
  - MYELODYSPLASTIC SYNDROME [None]
